FAERS Safety Report 5209972-9 (Version None)
Quarter: 2006Q4

REPORT INFORMATION
  Report Type: 
  Country: None (occurrence: None)
  Receive Date: 20061128
  Receipt Date: 20051229
  Transmission Date: 20070319
  Serious: Yes (Hospitalization, Other)
  Sender: FDA-Public Use
  Company Number: 2002054418

PATIENT
  Age: 65 Year
  Sex: Female
  Weight: 79.3795 kg

DRUGS (6)
  1. TIKOSYN [Suspect]
     Indication: ATRIAL FIBRILLATION
     Dosage: 1000 MCG (500 MCG, 2 IN 1 D), ORAL
     Route: 048
     Dates: start: 20020201
  2. MACROBID [Suspect]
     Indication: URINARY TRACT INFECTION
     Dosage: 100 MG (100 MG, 1 IN 1 D)
     Dates: start: 20051216
  3. ZITHROMAX [Concomitant]
  4. DAIRY PRODUCTS (ALL OTHER NON-THERAPEUTIC PRODUCTS) [Concomitant]
  5. UNKNOWN SEDATIVE (HYPNOTICS AND SEDATIVES) [Concomitant]
  6. COUMADIN [Concomitant]

REACTIONS (7)
  - ATRIAL FIBRILLATION [None]
  - BALANCE DISORDER [None]
  - CHEST DISCOMFORT [None]
  - DIZZINESS [None]
  - DYSPEPSIA [None]
  - HEART RATE INCREASED [None]
  - URINARY TRACT INFECTION [None]
